FAERS Safety Report 9943452 (Version 1)
Quarter: 2014Q1

REPORT INFORMATION
  Report Type: Report from Study
  Country: US (occurrence: US)
  Receive Date: 20140303
  Receipt Date: 20140303
  Transmission Date: 20141002
  Serious: No
  Sender: FDA-Public Use
  Company Number: US-ABBVIE-13P-163-1047046-00

PATIENT
  Age: 62 Year
  Sex: Female
  Weight: 61.29 kg

DRUGS (9)
  1. HUMIRA [Suspect]
     Indication: CROHN^S DISEASE
     Dosage: LOADING DOSE
     Dates: start: 2009, end: 2009
  2. HUMIRA [Suspect]
     Dosage: STARTED 2 WEEKS AFTER INITIAL DOSE
     Dates: start: 2009, end: 2009
  3. HUMIRA [Suspect]
     Dosage: STARTED 4 WEEKS AFTER INITIAL DOSE
     Dates: start: 2009
  4. AZITHROMYCIN [Suspect]
     Indication: NASOPHARYNGITIS
     Dates: start: 201212, end: 201301
  5. PREMARIN [Concomitant]
     Indication: HORMONE REPLACEMENT THERAPY
  6. MELOXICAM [Concomitant]
     Indication: PRODUCT USED FOR UNKNOWN INDICATION
  7. MULTIVITAMIN [Concomitant]
     Indication: VITAMIN SUPPLEMENTATION
  8. DEXILANT [Concomitant]
     Indication: GASTROOESOPHAGEAL REFLUX DISEASE
  9. PRILOSEC [Concomitant]
     Indication: GASTROOESOPHAGEAL REFLUX DISEASE

REACTIONS (4)
  - Malaise [Recovered/Resolved]
  - Nasopharyngitis [Recovered/Resolved]
  - Nasal congestion [Recovered/Resolved]
  - Fatigue [Recovered/Resolved]
